FAERS Safety Report 5878662-1 (Version None)
Quarter: 2008Q3

REPORT INFORMATION
  Report Type: 
  Country: None (occurrence: None)
  Receive Date: 20080912
  Receipt Date: 20080903
  Transmission Date: 20090109
  Serious: Yes (Other)
  Sender: FDA-Public Use
  Company Number: BR-BAYER-200817851LA

PATIENT
  Age: 84 Year
  Sex: Female

DRUGS (6)
  1. BETAFERON [Suspect]
     Indication: MULTIPLE SCLEROSIS
     Route: 058
     Dates: start: 20080826
  2. GABAPENTIN [Concomitant]
     Indication: PAIN
     Dosage: UNIT DOSE: 300 MG
     Route: 048
     Dates: start: 20080101
  3. BACLOFEN [Concomitant]
     Indication: PARAESTHESIA
     Dosage: UNIT DOSE: 25 MG
     Route: 048
     Dates: start: 20080101
  4. CAPTOPRIL [Concomitant]
     Indication: HYPERTENSION
     Dosage: UNIT DOSE: 25 MG
     Route: 048
     Dates: start: 20080701
  5. HYDROCHLOROTHIAZIDE [Concomitant]
     Indication: HYPERTENSION
     Dosage: UNIT DOSE: 25 MG
     Route: 048
     Dates: start: 20080701
  6. ATENOLOL [Concomitant]
     Indication: HYPERTENSION
     Dosage: UNIT DOSE: 100 MG
     Route: 048
     Dates: start: 20050101

REACTIONS (4)
  - DELIRIUM [None]
  - PAIN [None]
  - PARAESTHESIA [None]
  - POLYNEUROPATHY [None]
